FAERS Safety Report 7610905-6 (Version None)
Quarter: 2011Q3

REPORT INFORMATION
  Report Type: 
  Country: None (occurrence: None)
  Receive Date: 20110707
  Receipt Date: 20110627
  Transmission Date: 20111222
  Serious: Yes (Hospitalization)
  Sender: FDA-Public Use
  Company Number: DSA_47043_2011

PATIENT
  Age: 76 Year
  Sex: Female

DRUGS (5)
  1. BUPROPION HYDROCHLORIDE [Suspect]
     Indication: DEPRESSION
     Dosage: 150 MG, QD, ORAL
     Route: 048
     Dates: start: 20080101
  2. LORMETAZEPAM (LORMETAZEPAM) [Suspect]
     Indication: INSOMNIA
     Dosage: DF ORAL
     Route: 048
     Dates: start: 20090101
  3. ANAFRANIL [Suspect]
     Indication: DEPRESSION
     Dosage: 75 MG, QD, ORAL
     Route: 048
     Dates: start: 20080101
  4. METFORMIN HCL [Concomitant]
  5. ASPIRIN [Concomitant]

REACTIONS (2)
  - HIP FRACTURE [None]
  - FALL [None]
